FAERS Safety Report 11347855 (Version 1)
Quarter: 2015Q3

REPORT INFORMATION
  Report Type: Spontaneous
  Country: US (occurrence: US)
  Receive Date: 20150803
  Receipt Date: 20150803
  Transmission Date: 20151125
  Serious: No
  Sender: FDA-Public Use
  Company Number: US-ELI_LILLY_AND_COMPANY-US201108007387

PATIENT
  Age: 15 Year
  Sex: Female

DRUGS (3)
  1. STRATTERA [Suspect]
     Active Substance: ATOMOXETINE HYDROCHLORIDE
     Dosage: 80 MG, QD
     Dates: start: 20110818, end: 20110818
  2. STRATTERA [Suspect]
     Active Substance: ATOMOXETINE HYDROCHLORIDE
     Dosage: 40 MG, QD
     Dates: start: 20110811, end: 20110817
  3. AVIANE [Concomitant]
     Active Substance: ETHINYL ESTRADIOL\LEVONORGESTREL

REACTIONS (10)
  - Headache [Unknown]
  - Oropharyngeal discomfort [Unknown]
  - Irritability [Not Recovered/Not Resolved]
  - Chest pain [Recovered/Resolved]
  - Feeling abnormal [Unknown]
  - Heart rate abnormal [Recovering/Resolving]
  - Fatigue [Not Recovered/Not Resolved]
  - Nasopharyngitis [Unknown]
  - Sneezing [Unknown]
  - Discomfort [Unknown]

NARRATIVE: CASE EVENT DATE: 20110818
